FAERS Safety Report 8229576-3 (Version None)
Quarter: 2012Q1

REPORT INFORMATION
  Report Type: 
  Country: None (occurrence: None)
  Receive Date: 20120322
  Receipt Date: 20120314
  Transmission Date: 20120608
  Serious: Yes (Other)
  Sender: FDA-Public Use
  Company Number: US-ASTRAZENECA-2012SE17755

PATIENT
  Age: 59 Year
  Sex: Male

DRUGS (9)
  1. CELEXA [Concomitant]
  2. LISINOPRIL [Concomitant]
  3. SYMBICORT [Suspect]
     Route: 055
  4. TOPROL-XL [Suspect]
     Route: 048
  5. NEXIUM [Suspect]
     Route: 048
  6. VYTORIN [Concomitant]
  7. ASPIRIN [Concomitant]
  8. PROVENTIL [Concomitant]
  9. EFFIENT [Concomitant]

REACTIONS (1)
  - LUNG NEOPLASM [None]
